FAERS Safety Report 4822863-8 (Version None)
Quarter: 2005Q4

REPORT INFORMATION
  Report Type: 
  Country: None (occurrence: None)
  Receive Date: 20051104
  Receipt Date: 20051027
  Transmission Date: 20060501
  Serious: Yes (Other)
  Sender: FDA-Public Use
  Company Number: 2005148102

PATIENT
  Age: 47 Year
  Sex: Male
  Weight: 63.5036 kg

DRUGS (3)
  1. LIPITOR [Suspect]
     Indication: BLOOD CHOLESTEROL
     Dosage: 40 MG (40 MG, 1 IN 1 D)
     Dates: start: 20050101
  2. LOPID [Suspect]
     Indication: BLOOD TRIGLYCERIDES
     Dosage: 1200 MG, (600 MG, 2 IN 1 D
  3. LOPRESSOR [Concomitant]

REACTIONS (4)
  - CORONARY ARTERY OCCLUSION [None]
  - EAR DISCOMFORT [None]
  - MUSCLE SPASMS [None]
  - PAIN IN JAW [None]
